FAERS Safety Report 8807451 (Version 2)
Quarter: 2012Q4

REPORT INFORMATION
  Report Type: Report from Study
  Country: JP (occurrence: JP)
  Receive Date: 20120925
  Receipt Date: 20121127
  Transmission Date: 20130627
  Serious: Yes (Life-Threatening, Other)
  Sender: FDA-Public Use
  Company Number: JP-VERTEX PHARMACEUTICAL INC.-AE-2012-005925

PATIENT
  Age: 23 Year
  Sex: Male

DRUGS (10)
  1. VX-950 (TELAPREVIR) [Suspect]
     Indication: HEPATITIS C
     Dosage: 2250 mg, qd
     Route: 048
     Dates: start: 20120302, end: 20120524
  2. RIBAVIRIN [Suspect]
     Indication: CHRONIC HEPATITIS C
     Dosage: 1000 mg, qd
     Route: 048
     Dates: start: 20120302
  3. PEGINTERFERON ALFA-2B [Suspect]
     Indication: CHRONIC HEPATITIS C
     Dosage: 1.5 ?g/kg, qw
     Route: 051
     Dates: start: 20120302, end: 20120322
  4. PEGINTERFERON ALFA-2B [Suspect]
     Dosage: 0.75 ?g/kg, qw
     Route: 051
     Dates: start: 20120323
  5. SELBEX [Concomitant]
     Dosage: 150 mg, qd
     Route: 048
     Dates: start: 20111021
  6. LOBU [Concomitant]
     Dosage: 180 mg, qd
     Route: 048
     Dates: start: 20120303
  7. TAKEPRON [Concomitant]
     Dosage: 30 mg, qd
     Route: 048
     Dates: start: 20120303
  8. PRIMPERAN [Concomitant]
     Dosage: 16.5 mg, qd
     Route: 048
     Dates: start: 20120305
  9. TRAVELMIN                          /00517301/ [Concomitant]
     Dosage: 3 DF, qd
     Route: 048
     Dates: start: 20120315
  10. AZULFIDINE EN [Concomitant]
     Dosage: 1000 mg, qd
     Route: 048
     Dates: start: 20111021

REACTIONS (3)
  - Depression [Recovered/Resolved]
  - Neutrophil count decreased [Recovered/Resolved]
  - White blood cell count decreased [Recovered/Resolved]
